FAERS Safety Report 10097058 (Version 1)
Quarter: 2014Q2

REPORT INFORMATION
  Report Type: Other
  Country: KR (occurrence: KR)
  Receive Date: 20140422
  Receipt Date: 20140422
  Transmission Date: 20141212
  Serious: Yes (Other)
  Sender: FDA-Public Use
  Company Number: KR-BRISTOL-MYERS SQUIBB COMPANY-20653515

PATIENT
  Age: 36 Year
  Sex: Female

DRUGS (1)
  1. ABILIFY TABS 30 MG [Suspect]
     Indication: SCHIZOPHRENIA, PARANOID TYPE
     Route: 065

REACTIONS (1)
  - Psychotic disorder [Recovering/Resolving]
